FAERS Safety Report 15203049 (Version 1)
Quarter: 2018Q3

REPORT INFORMATION
  Report Type: Spontaneous
  Country: FR (occurrence: FR)
  Receive Date: 20180726
  Receipt Date: 20180726
  Transmission Date: 20181010
  Serious: Yes (Death)
  Sender: FDA-Public Use
  Company Number: FR-PFIZER INC-2018294548

PATIENT
  Age: 67 Year
  Sex: Male

DRUGS (14)
  1. CYTARABINE. [Suspect]
     Active Substance: CYTARABINE
     Indication: B-CELL LYMPHOMA
     Dosage: 30 MG, SINGLE
     Route: 042
     Dates: start: 20180528, end: 20180528
  2. LEVETIRACETAM. [Suspect]
     Active Substance: LEVETIRACETAM
     Indication: SEIZURE
     Dosage: 1000 MG, 1X/DAY
     Route: 042
     Dates: start: 20180524
  3. CYCLOPHOSPHAMIDE. [Suspect]
     Active Substance: CYCLOPHOSPHAMIDE
     Indication: B-CELL LYMPHOMA
     Dosage: 1.4 G, SINGLE
     Route: 042
     Dates: start: 20180518, end: 20180518
  4. LEVOFLOXACINE ACTAVIS [Suspect]
     Active Substance: LEVOFLOXACIN
     Indication: INFECTION
     Dosage: 1 DF, 1X/DAY
     Route: 042
     Dates: start: 20180531, end: 20180613
  5. HUMALOG [Concomitant]
     Active Substance: INSULIN LISPRO
  6. VINCRISTINE SULFATE. [Suspect]
     Active Substance: VINCRISTINE SULFATE
     Indication: B-CELL LYMPHOMA
     Dosage: 2 G, SINGLE
     Route: 042
     Dates: start: 20180518, end: 20180518
  7. INSULATARD /00646002/ [Suspect]
     Active Substance: INSULIN HUMAN
     Indication: DIABETES MELLITUS
     Dosage: 40 IU, 1X/DAY
     Route: 058
     Dates: start: 20180524
  8. METHOTREXATE SODIUM. [Suspect]
     Active Substance: METHOTREXATE SODIUM
     Indication: B-CELL LYMPHOMA
     Dosage: 15 MG, SINGLE
     Route: 042
     Dates: start: 20180528, end: 20180528
  9. VANCOMYCINE SANDOZ [Suspect]
     Active Substance: VANCOMYCIN
     Indication: INFECTION
     Dosage: 15 MG, 1X/DAY
     Route: 042
     Dates: start: 20180528, end: 20180611
  10. CEFAZOLINE MYLAN [Suspect]
     Active Substance: CEFAZOLIN SODIUM
     Indication: INFECTION
     Dosage: 3 G, 1X/DAY
     Route: 042
     Dates: start: 20180531, end: 20180613
  11. RITUXIMAB. [Suspect]
     Active Substance: RITUXIMAB
     Indication: B-CELL LYMPHOMA
     Dosage: 710 MG, SINGLE
     Route: 042
     Dates: start: 20180518, end: 20180518
  12. INNOHEP [Concomitant]
     Active Substance: TINZAPARIN SODIUM
  13. DOXORUBICIN HCL [Suspect]
     Active Substance: DOXORUBICIN HYDROCHLORIDE
     Indication: B-CELL LYMPHOMA
     Dosage: 95 MG, SINGLE
     Route: 042
     Dates: start: 20180518, end: 20180518
  14. EUPANTOL [Concomitant]
     Active Substance: PANTOPRAZOLE SODIUM

REACTIONS (2)
  - Jaundice cholestatic [Fatal]
  - Neoplasm progression [Fatal]

NARRATIVE: CASE EVENT DATE: 20180606
